FAERS Safety Report 14336107 (Version 1)
Quarter: 2017Q4

REPORT INFORMATION
  Report Type: Spontaneous
  Country: US (occurrence: US)
  Receive Date: 20171229
  Receipt Date: 20171229
  Transmission Date: 20180321
  Serious: Yes (Death)
  Sender: FDA-Public Use
  Company Number: PHEH2017US041922

PATIENT
  Age: 75 Year
  Sex: Male

DRUGS (1)
  1. HYCAMTIN [Suspect]
     Active Substance: TOPOTECAN HYDROCHLORIDE
     Indication: LUNG CARCINOMA CELL TYPE UNSPECIFIED STAGE 0
     Dosage: 2.5 MG, QD (FOR 5 DAYS EVERY 21 DAYS)
     Route: 048
     Dates: start: 20171017

REACTIONS (1)
  - Death [Fatal]

NARRATIVE: CASE EVENT DATE: 20171223
